FAERS Safety Report 5629945-1 (Version None)
Quarter: 2008Q1

REPORT INFORMATION
  Report Type: 
  Country: None (occurrence: None)
  Receive Date: 20080218
  Receipt Date: 20080206
  Transmission Date: 20080703
  Serious: Yes (Other)
  Sender: FDA-Public Use
  Company Number: JP-ROCHE-543884

PATIENT
  Age: 4 Year
  Sex: Male
  Weight: 18 kg

DRUGS (9)
  1. TAMIFLU [Suspect]
     Dosage: DRUG REPORTED AS TAMIFLU DRY SYRUP 3%.
     Route: 048
     Dates: start: 20080124, end: 20080124
  2. CALONAL [Suspect]
     Dosage: AS NEEDED.
     Route: 048
  3. MUCODYNE [Concomitant]
     Route: 048
     Dates: start: 20080124, end: 20080124
  4. PREMARIN [Concomitant]
     Route: 048
     Dates: start: 20080124, end: 20080124
  5. RESPLEN [Concomitant]
     Dosage: FORM: FINE GRANULES
     Route: 048
     Dates: start: 20080124, end: 20080124
  6. PERIACTIN [Concomitant]
     Route: 048
     Dates: start: 20080124, end: 20080124
  7. MIYA BM [Concomitant]
     Dosage: FINE GRANULES
     Route: 048
     Dates: start: 20080124, end: 20080124
  8. LAC-B [Concomitant]
     Route: 048
     Dates: start: 20080124, end: 20080124
  9. HOKUNALIN [Concomitant]
     Dosage: FORM: TAPE.
     Route: 064
     Dates: start: 20080124, end: 20080124

REACTIONS (2)
  - ABNORMAL BEHAVIOUR [None]
  - DYSARTHRIA [None]
